FAERS Safety Report 7519396-7 (Version None)
Quarter: 2011Q2

REPORT INFORMATION
  Report Type: 
  Country: None (occurrence: None)
  Receive Date: 20110602
  Receipt Date: 20110527
  Transmission Date: 20111010
  Serious: Yes (Other)
  Sender: FDA-Public Use
  Company Number: JP-PFIZER INC-2011114656

PATIENT

DRUGS (1)
  1. AZULFIDINE [Suspect]
     Dosage: UNK

REACTIONS (1)
  - OESOPHAGEAL CANDIDIASIS [None]
